FAERS Safety Report 12257517 (Version 1)
Quarter: 2016Q2

REPORT INFORMATION
  Report Type: Report from Study
  Country: BR (occurrence: BR)
  Receive Date: 20160412
  Receipt Date: 20160412
  Transmission Date: 20160815
  Serious: Yes (Other)
  Sender: FDA-Public Use
  Company Number: BR-TEVA-649473ISR

PATIENT
  Sex: Female

DRUGS (4)
  1. VENLAFAXINE [Concomitant]
     Active Substance: VENLAFAXINE HYDROCHLORIDE
  2. DONAREN [Concomitant]
     Active Substance: TRAZODONE HYDROCHLORIDE
  3. STAVIGILE [Concomitant]
     Active Substance: MODAFINIL
  4. COPAXONE [Suspect]
     Active Substance: GLATIRAMER ACETATE
     Indication: MULTIPLE SCLEROSIS
     Dosage: 20 MILLIGRAM/MILLILITERS DAILY;
     Route: 058
     Dates: start: 201105

REACTIONS (2)
  - Neurofibroma [Not Recovered/Not Resolved]
  - Drug dose omission [Unknown]
